FAERS Safety Report 12010211 (Version 1)
Quarter: 2016Q1

REPORT INFORMATION
  Report Type: Spontaneous
  Country: PL (occurrence: PL)
  Receive Date: 20160205
  Receipt Date: 20160205
  Transmission Date: 20160526
  Serious: Yes (Other)
  Sender: FDA-Public Use
  Company Number: PL-PFIZER INC-2016061874

PATIENT
  Age: 65 Year
  Sex: Female
  Weight: 114 kg

DRUGS (12)
  1. SUTENT [Suspect]
     Active Substance: SUNITINIB MALATE
     Indication: RENAL CANCER
     Dosage: 50 MG, 1X/DAY
     Route: 048
     Dates: start: 20150211, end: 20150422
  2. ARGOSULFAN [Concomitant]
     Dosage: 32 UNK, UNK
  3. BIOPRAZOL [Concomitant]
     Dosage: 1 DF, 1X/DAY
  4. VITAMIN B6 [Concomitant]
     Active Substance: PYRIDOXINE HYDROCHLORIDE
     Dosage: 1 DF, 3X/DAY
  5. BISOCARD [Concomitant]
     Active Substance: BISOPROLOL
     Dosage: 1 DF, 1X/DAY
  6. NASEN [Concomitant]
     Dosage: 1 TABLET AD HOC
  7. DALACIN [Concomitant]
     Active Substance: CLINDAMYCIN\CLINDAMYCIN PHOSPHATE
     Dosage: 1 DF, 3X/DAY
  8. TRILAC [Concomitant]
     Dosage: 1 DF, 2X/DAY
  9. METRONIDAZOLE. [Concomitant]
     Active Substance: METRONIDAZOLE
     Dosage: 1 DF, 1X/DAY
  10. AMLODIPINE [Concomitant]
     Active Substance: AMLODIPINE BESYLATE
     Dosage: 1 DF, 1X/DAY
  11. VITAMIN B6 [Concomitant]
     Active Substance: PYRIDOXINE HYDROCHLORIDE
     Dosage: 1 DF, 3X/DAY
  12. NIMESIL [Concomitant]
     Active Substance: NIMESULIDE
     Dosage: 1 SACHET AD HOC

REACTIONS (10)
  - Hypertension [Unknown]
  - Insomnia [Unknown]
  - Fatigue [Unknown]
  - Anaemia [Unknown]
  - Polycythaemia [Unknown]
  - Dyspepsia [Unknown]
  - Weight decreased [Unknown]
  - Dry skin [Unknown]
  - Skin ulcer [Unknown]
  - Pyrexia [Unknown]

NARRATIVE: CASE EVENT DATE: 20150211
